FAERS Safety Report 7223534-3 (Version None)
Quarter: 2011Q1

REPORT INFORMATION
  Report Type: 
  Country: None (occurrence: None)
  Receive Date: 20110112
  Receipt Date: 20100816
  Transmission Date: 20110831
  Serious: No
  Sender: FDA-Public Use
  Company Number: US-ALLERGAN-1010573US

PATIENT
  Age: 62 Year
  Sex: Female

DRUGS (3)
  1. PRED FORTEA? [Suspect]
     Indication: PRODUCT USED FOR UNKNOWN INDICATION
     Dosage: UNK
     Route: 047
     Dates: start: 20070101
  2. REFRESH PLUS [Suspect]
     Indication: PRODUCT USED FOR UNKNOWN INDICATION
     Dosage: 1-2 GTT, 8-10 TIMES A DAY
     Route: 047
  3. RESTASIS [Suspect]
     Indication: DRY EYE
     Dosage: 1 GTT, QD-TID
     Route: 047
     Dates: start: 20070101

REACTIONS (1)
  - EYE COMPLICATION ASSOCIATED WITH DEVICE [None]
